FAERS Safety Report 5355763-8 (Version None)
Quarter: 2007Q2

REPORT INFORMATION
  Report Type: 
  Country: None (occurrence: None)
  Receive Date: 20070611
  Receipt Date: 20070611
  Transmission Date: 20071010
  Serious: Yes (Disabling, Other)
  Sender: FDA-Public Use
  Company Number: None

PATIENT
  Age: 51 Year
  Sex: Female
  Weight: 56.6996 kg

DRUGS (2)
  1. LEVAQUIN [Suspect]
     Indication: EAR INFECTION
     Dosage: ONE TABLET DAILY PO
     Route: 048
     Dates: start: 20070210, end: 20070311
  2. LEVAQUIN [Suspect]
     Indication: SINUSITIS
     Dosage: ONE TABLET DAILY PO
     Route: 048
     Dates: start: 20070210, end: 20070311

REACTIONS (13)
  - ABASIA [None]
  - ANXIETY [None]
  - ARTHROPATHY [None]
  - ASTHENIA [None]
  - DIZZINESS [None]
  - DYSPHAGIA [None]
  - MUSCULAR WEAKNESS [None]
  - PAIN [None]
  - PAIN IN EXTREMITY [None]
  - SOMNOLENCE [None]
  - STOMACH DISCOMFORT [None]
  - THROAT TIGHTNESS [None]
  - TINNITUS [None]
